FAERS Safety Report 6538266-4 (Version None)
Quarter: 2010Q1

REPORT INFORMATION
  Report Type: 
  Country: None (occurrence: None)
  Receive Date: 20100112
  Receipt Date: 20100112
  Transmission Date: 20100710
  Serious: Yes (Hospitalization, Other)
  Sender: FDA-Public Use
  Company Number: None

PATIENT
  Sex: Male
  Weight: 90.7194 kg

DRUGS (1)
  1. SEROQUEL [Suspect]

REACTIONS (5)
  - EYE ROLLING [None]
  - INCOHERENT [None]
  - INSOMNIA [None]
  - MUSCLE TWITCHING [None]
  - TARDIVE DYSKINESIA [None]
